FAERS Safety Report 9506256 (Version 2)
Quarter: 2014Q1

REPORT INFORMATION
  Report Type: Spontaneous
  Country: US (occurrence: None)
  Receive Date: 20130301
  Receipt Date: 20140228
  Transmission Date: 20141002
  Serious: Yes (Life-Threatening, Other)
  Sender: FDA-Public Use
  Company Number: PHEH2012US006440

PATIENT
  Age: 48 Year
  Sex: Male

DRUGS (1)
  1. TEGRETOL [Suspect]
     Indication: CONVULSION
     Dosage: (1800 MG DAILY

REACTIONS (3)
  - Convulsion [None]
  - Wrong technique in drug usage process [None]
  - Fatigue [None]
